FAERS Safety Report 18845144 (Version 1)
Quarter: 2021Q1

REPORT INFORMATION
  Report Type: Report from Study
  Country: US (occurrence: US)
  Receive Date: 20210203
  Receipt Date: 20210203
  Transmission Date: 20210419
  Serious: No
  Sender: FDA-Public Use
  Company Number: US-EXELIXIS-CABO-20030484

PATIENT
  Sex: Female

DRUGS (5)
  1. CABOMETYX [Suspect]
     Active Substance: CABOZANTINIB S-MALATE
     Indication: MALIGNANT CONNECTIVE TISSUE NEOPLASM
     Dosage: 60 MG
  2. CABOMETYX [Suspect]
     Active Substance: CABOZANTINIB S-MALATE
     Indication: OSTEOSARCOMA
  3. IFOSFAMIDE?ETOPOSIDE [Concomitant]
  4. ESTRADIOL. [Concomitant]
     Active Substance: ESTRADIOL
  5. METHYL THIO PROPIONIC ACID ETHYL ESTER [Concomitant]

REACTIONS (2)
  - Migraine [Unknown]
  - Off label use [Unknown]
